FAERS Safety Report 21274391 (Version 5)
Quarter: 2023Q1

REPORT INFORMATION
  Report Type: Report from Study
  Country: US (occurrence: US)
  Receive Date: 20220831
  Receipt Date: 20230131
  Transmission Date: 20230418
  Serious: Yes (Hospitalization, Other)
  Sender: FDA-Public Use
  Company Number: US-ABBVIE-22K-163-4520814-00

PATIENT
  Age: 76 Year
  Sex: Female

DRUGS (30)
  1. VENCLEXTA [Suspect]
     Active Substance: VENETOCLAX
     Indication: Product used for unknown indication
     Route: 048
     Dates: start: 20210114
  2. RANEXA [Concomitant]
     Active Substance: RANOLAZINE
     Indication: Product used for unknown indication
     Dosage: EXTENDED RELEASE TAKE ONE TAB BY MOUTH ONCE DAILY?FORM STRENGTH: 500 MG
     Route: 048
  3. METOPROLOL SUCCINATE [Concomitant]
     Active Substance: METOPROLOL SUCCINATE
     Indication: Product used for unknown indication
     Route: 048
  4. METOPROLOL SUCCINATE [Concomitant]
     Active Substance: METOPROLOL SUCCINATE
     Indication: Product used for unknown indication
     Dosage: TAKE A HALF TABLET BY MOUTH ONCE DAILY?FORM STRENGTH: 25 MG
     Route: 048
  5. LASIX [Concomitant]
     Active Substance: FUROSEMIDE
     Indication: Product used for unknown indication
     Dosage: FORM STRENGTH: 20 MG
     Route: 048
  6. ALBUTEROL [Concomitant]
     Active Substance: ALBUTEROL
     Indication: Product used for unknown indication
     Dosage: 90 MCG/ACTUATION INHALER, INHALE 1 TO 2 PUFFS BY MOUTH EVERY 4 TO 6 HOURS AS NEEDED
     Route: 055
  7. ALBUTEROL [Concomitant]
     Active Substance: ALBUTEROL
     Indication: Product used for unknown indication
     Dosage: 90 MCG/ACTUATION INHALER, INHALE 1 TO 2 PUFFS BY MOUTH EVERY 4 TO 6 HOURS AS NEEDED
     Route: 055
  8. ALBUTEROL [Concomitant]
     Active Substance: ALBUTEROL
     Indication: Product used for unknown indication
     Dosage: 90 MCG/ACTUATION INHALER, INHALE 1 TO 2 PUFFS BY MOUTH EVERY 4 TO 6 HOURS AS NEEDED
     Route: 055
  9. BREO ELLIPTA [Concomitant]
     Active Substance: FLUTICASONE FUROATE\VILANTEROL TRIFENATATE
     Indication: Product used for unknown indication
     Dosage: 200-25 MCG/DOSE INHALER
     Route: 055
  10. ERYTHROMYCIN [Concomitant]
     Active Substance: ERYTHROMYCIN
     Indication: Product used for unknown indication
     Dosage: 5 MG/GRAM (0.5 %) APPLY 1 APPLICATION TO LEFT EYE AT BEDTIME. 1/4 INCH STRIP ON LEFT EYELID
  11. VITAMIN D3 [Concomitant]
     Active Substance: CHOLECALCIFEROL
     Indication: Product used for unknown indication
     Dosage: FORM STRENGTH: 125 MG
     Route: 048
  12. OXYCODONE [Concomitant]
     Active Substance: OXYCODONE
     Indication: Product used for unknown indication
     Dosage: 1-2 TABLETS BY MOUTH EVERY 4 HOURS AS NEEDED FOR PAIN
     Route: 048
  13. OXYCODONE [Concomitant]
     Active Substance: OXYCODONE
     Indication: Product used for unknown indication
     Dosage: 1-2 TABLETS BY MOUTH EVERY 4 HOURS AS NEEDED FOR PAIN
     Route: 048
  14. OXYCODONE [Concomitant]
     Active Substance: OXYCODONE
     Indication: Product used for unknown indication
     Dosage: 1-2 TABLETS BY MOUTH EVERY 4 HOURS AS NEEDED FOR PAIN
     Route: 048
  15. OXYCODONE [Concomitant]
     Active Substance: OXYCODONE
     Indication: Product used for unknown indication
     Dosage: 1-2 TABLETS BY MOUTH EVERY 4 HOURS AS NEEDED FOR PAIN?FORM STRENGTH: 10 MG
     Route: 048
  16. FENTANYL [Concomitant]
     Active Substance: FENTANYL
     Indication: Product used for unknown indication
     Dosage: 100 MCH/INH USED AS DIRECTED. AS NEEDED FOR PAIN
  17. ALPRAZOLAM [Concomitant]
     Active Substance: ALPRAZOLAM
     Indication: Product used for unknown indication
     Dosage: ONE TABLET 3 TIMES A DAILY AS NEEDED FOR
     Route: 048
  18. LATANOPROST [Concomitant]
     Active Substance: LATANOPROST
     Indication: Product used for unknown indication
     Dosage: 0.005 %, ADMINISTER 1 DROP INTO BOTH EYES AT BEDTIME.
  19. XALATAN [Concomitant]
     Active Substance: LATANOPROST
     Indication: Product used for unknown indication
     Dosage: 0.005 %, ADMINISTER 1 DROP INTO BOTH EYES AT BEDTIME.
  20. DENOSUMAB [Concomitant]
     Active Substance: DENOSUMAB
     Indication: Product used for unknown indication
  21. POTASSIUM CHLORIDE [Concomitant]
     Active Substance: POTASSIUM CHLORIDE
     Indication: Product used for unknown indication
     Dosage: TAKE 0.5 TABLETS (10 MED TOTAL) BY MOUTH 1 (ONE) TIME EACH DAY.
     Route: 048
  22. CHOLECALCIFEROL [Concomitant]
     Active Substance: CHOLECALCIFEROL
     Indication: Product used for unknown indication
     Dosage: 1,250 MCG (50,000 UNIT) CAPSULE
     Route: 048
  23. Romycin [Concomitant]
     Indication: Product used for unknown indication
     Dosage: 5 MG/GRAM (0.5 %) APPLY 1 APPLICATION TO LEFT EYE AT BEDTIME. 1/4 INCH STRIP ON LEFT EYELID
  24. ATORVASTATIN [Concomitant]
     Active Substance: ATORVASTATIN
     Indication: Product used for unknown indication
     Route: 048
  25. ONDANSETRON [Concomitant]
     Active Substance: ONDANSETRON
     Indication: Product used for unknown indication
     Dosage: DISSOLVE 2 TABLETS (8 MG TOTAL) ON TOP OF THE TONGUE EVERY 8 (EIGHT) HOURS IF NEEDED .
     Route: 048
  26. XGEVA [Concomitant]
     Active Substance: DENOSUMAB
     Indication: Product used for unknown indication
  27. OMEPRAZOLE [Concomitant]
     Active Substance: OMEPRAZOLE
     Indication: Product used for unknown indication
     Dosage: FORM STRENGTH: 40 MILLIGRAM
     Route: 048
  28. NARCAN [Concomitant]
     Active Substance: NALOXONE HYDROCHLORIDE
     Indication: Product used for unknown indication
     Dosage: 4 MG/ACTUATION NASAL SPRAY
  29. CYCLOBENZAPRINE [Concomitant]
     Active Substance: CYCLOBENZAPRINE
     Indication: Product used for unknown indication
     Route: 048
  30. SYNTHROID [Suspect]
     Active Substance: LEVOTHYROXINE SODIUM
     Indication: Product used for unknown indication
     Route: 048

REACTIONS (51)
  - Arteriosclerosis coronary artery [Unknown]
  - Back pain [Unknown]
  - Arthritis [Unknown]
  - Hyperadrenalism [Unknown]
  - Neuropathy peripheral [Unknown]
  - Orthostatic hypotension [Unknown]
  - Atrial fibrillation [Unknown]
  - Asthma [Unknown]
  - Essential hypertension [Unknown]
  - Chest pain [Unknown]
  - Hypernatraemia [Unknown]
  - Angina pectoris [Unknown]
  - Bundle branch block left [Unknown]
  - Generalised anxiety disorder [Unknown]
  - Atrial fibrillation [Unknown]
  - Plasma cell myeloma in remission [Unknown]
  - Cardiac pacemaker insertion [Unknown]
  - Arrhythmia [Unknown]
  - Atrioventricular block second degree [Unknown]
  - Arteriosclerosis coronary artery [Unknown]
  - Atrial fibrillation [Unknown]
  - Sinus node dysfunction [Unknown]
  - Mitral valve incompetence [Unknown]
  - Aortic valve stenosis [Unknown]
  - Aortic valve sclerosis [Unknown]
  - Aortic valve incompetence [Unknown]
  - Aortic dilatation [Unknown]
  - Bradycardia [Unknown]
  - Ischaemia [Unknown]
  - Light chain analysis abnormal [Unknown]
  - Pain in extremity [Unknown]
  - Groin pain [Unknown]
  - Unevaluable event [Unknown]
  - Plasma cell myeloma [Recovering/Resolving]
  - Pain [Unknown]
  - Pain in extremity [Unknown]
  - Asthma [Unknown]
  - Greater trochanteric pain syndrome [Unknown]
  - Bone pain [Unknown]
  - Hyperglycaemia [Unknown]
  - Anxiety [Unknown]
  - Hyperlipidaemia [Unknown]
  - Atrial septal defect [Unknown]
  - Essential hypertension [Unknown]
  - Acute kidney injury [Unknown]
  - Hypothyroidism [Unknown]
  - Diverticulum [Unknown]
  - Chronic obstructive pulmonary disease [Unknown]
  - Cancer pain [Unknown]
  - Osteoporosis [Unknown]
  - Irritable bowel syndrome [Unknown]

NARRATIVE: CASE EVENT DATE: 20210310
